FAERS Safety Report 9523978 (Version 1)
Quarter: 2013Q1

REPORT INFORMATION
  Report Type: Spontaneous
  Country: US (occurrence: None)
  Receive Date: 20130314
  Receipt Date: 20130314
  Transmission Date: 20140127
  Serious: No
  Sender: FDA-Public Use
  Company Number: 1302USA002035

PATIENT
  Age: 59 Year
  Sex: Female

DRUGS (3)
  1. RIBAVIRIN [Suspect]
     Indication: HEPATITIS C
     Dates: start: 20120912
  2. BOCEPREVIR [Suspect]
     Indication: HEPATITIS C
     Dates: start: 20121017
  3. PEGINTERFERON ALFA 2A [Suspect]
     Indication: HEPATITIS C
     Route: 058
     Dates: start: 20120912

REACTIONS (2)
  - Insomnia [None]
  - Anaemia [None]
